FAERS Safety Report 5702387-6 (Version None)
Quarter: 2008Q2

REPORT INFORMATION
  Report Type: 
  Country: None (occurrence: None)
  Receive Date: 20080411
  Receipt Date: 20080407
  Transmission Date: 20081010
  Serious: Yes (Other)
  Sender: FDA-Public Use
  Company Number: DE-BRISTOL-MYERS SQUIBB COMPANY-14143887

PATIENT
  Age: 13 Year
  Sex: Male

DRUGS (3)
  1. CYCLOPHOSPHAMIDE [Suspect]
  2. ACYCLOVIR [Suspect]
  3. BUSULFAN [Suspect]

REACTIONS (2)
  - CONVULSION [None]
  - GRAFT VERSUS HOST DISEASE [None]
